FAERS Safety Report 12633386 (Version 1)
Quarter: 2016Q3

REPORT INFORMATION
  Report Type: Spontaneous
  Country: US (occurrence: None)
  Receive Date: 20160808
  Receipt Date: 20160808
  Transmission Date: 20161109
  Serious: No
  Sender: FDA-Public Use
  Company Number: None

PATIENT
  Age: 69 Year
  Sex: Female
  Weight: 66.68 kg

DRUGS (1)
  1. CIPROFLOXACIN 500 MG TABLETS, 500 MG AUROBINDO [Suspect]
     Active Substance: CIPROFLOXACIN
     Indication: URINARY TRACT INFECTION
     Route: 048
     Dates: start: 20160802, end: 20160804

REACTIONS (3)
  - Paraesthesia [None]
  - Burning sensation [None]
  - Pain in extremity [None]

NARRATIVE: CASE EVENT DATE: 20160803
